FAERS Safety Report 15140324 (Version 5)
Quarter: 2022Q2

REPORT INFORMATION
  Report Type: Spontaneous
  Country: GB (occurrence: GB)
  Receive Date: 20180713
  Receipt Date: 20220421
  Transmission Date: 20220721
  Serious: Yes (Hospitalization, Other)
  Sender: FDA-Public Use
  Company Number: PHHY2018GB036839

PATIENT
  Age: 50 Year
  Sex: Female

DRUGS (18)
  1. LETROZOLE [Suspect]
     Active Substance: LETROZOLE
     Indication: HER2 positive breast cancer
     Dosage: 2.5 MG, QD
     Route: 048
     Dates: start: 20151124
  2. DOCETAXEL [Suspect]
     Active Substance: DOCETAXEL
     Indication: HER2 positive breast cancer
     Dosage: ON 04/NOV/2015, SHE COMPLETED PLANNED CYCLES OF DOCETAXEL.
     Route: 042
     Dates: start: 20150722, end: 20151104
  3. DOCETAXEL [Suspect]
     Active Substance: DOCETAXEL
     Dosage: 160 MG, Q3W (ON 04 NOV 2015 SHE COMPLETED PLANNED CYCLES OF DOCETAXEL)
     Route: 042
     Dates: start: 20151104
  4. PERTUZUMAB [Suspect]
     Active Substance: PERTUZUMAB
     Indication: HER2 positive breast cancer
     Dosage: 840 MG, UNK (LOADING DOSE)
     Route: 042
     Dates: start: 20150722, end: 20150722
  5. PERTUZUMAB [Suspect]
     Active Substance: PERTUZUMAB
     Dosage: 840 MG
     Route: 042
     Dates: start: 20150722
  6. PERTUZUMAB [Suspect]
     Active Substance: PERTUZUMAB
     Dosage: 420 MG, Q3W (MAINTENANCE DOSE)
     Route: 042
     Dates: start: 20150812
  7. TRASTUZUMAB [Suspect]
     Active Substance: TRASTUZUMAB
     Indication: HER2 positive breast cancer
     Dosage: 900 MG (LOADING DOSE)
     Route: 042
     Dates: start: 20150722, end: 20150722
  8. TRASTUZUMAB [Suspect]
     Active Substance: TRASTUZUMAB
     Dosage: 75 MG, Q3W (MAINTENANCE DOSE)
     Route: 042
     Dates: start: 20150812
  9. TRASTUZUMAB [Suspect]
     Active Substance: TRASTUZUMAB
     Dosage: 525 MG, TIW (MAINTENANCE DOSE)
     Route: 042
     Dates: start: 20180109, end: 20180220
  10. TRASTUZUMAB [Suspect]
     Active Substance: TRASTUZUMAB
     Dosage: 675 MG, TIW (MAINTENANCE DOSE ,LOADING DOSE)
     Route: 042
     Dates: start: 20150812, end: 20171219
  11. DEXAMETHASONE [Concomitant]
     Active Substance: DEXAMETHASONE
     Indication: Prophylaxis
     Dosage: 2 MG, UNK
     Route: 048
     Dates: start: 20150901, end: 20150903
  12. DEXAMETHASONE [Concomitant]
     Active Substance: DEXAMETHASONE
     Dosage: 2 MG, UNK (3 DAYS STARTING A DAY BEFORE CHEMOTHERAPY)
     Route: 048
  13. DEXAMETHASONE [Concomitant]
     Active Substance: DEXAMETHASONE
     Dosage: 2 MG, UNK
     Route: 048
     Dates: start: 20150903
  14. DEXAMETHASONE [Concomitant]
     Active Substance: DEXAMETHASONE
     Dosage: 02 UNK (3 DAYS STARTING A DAY BEFORE CHEMOTHERAPY)
     Route: 048
     Dates: start: 20150806
  15. NAPROXEN [Concomitant]
     Active Substance: NAPROXEN
     Indication: Product used for unknown indication
     Dosage: UNK, PRN (AS NECESSARY)
     Route: 048
  16. LOPERAMIDE [Concomitant]
     Active Substance: LOPERAMIDE
     Indication: Prophylaxis
     Dosage: 1 OR 2 CAPSULES, MAXIMUM 8 TIMES A DAY
     Route: 048
  17. LOPERAMIDE [Concomitant]
     Active Substance: LOPERAMIDE
     Dosage: 2 MG (1 OR 2 CAPSULES, MAXIMUM 8 TIMES A DAY)
     Route: 048
     Dates: start: 20150804, end: 20180323
  18. BENDROFLUMETHIAZIDE [Concomitant]
     Active Substance: BENDROFLUMETHIAZIDE
     Indication: Product used for unknown indication
     Dosage: 2.5 MG
     Route: 048

REACTIONS (21)
  - Ejection fraction decreased [Not Recovered/Not Resolved]
  - Chest discomfort [Recovered/Resolved]
  - Hypokalaemia [Recovered/Resolved]
  - Bronchitis [Recovered/Resolved]
  - Nail dystrophy [Recovered/Resolved]
  - Skin exfoliation [Not Recovered/Not Resolved]
  - Onychomadesis [Recovered/Resolved]
  - Dysphagia [Not Recovered/Not Resolved]
  - Laryngitis [Unknown]
  - Neuropathy peripheral [Not Recovered/Not Resolved]
  - Cellulitis [Recovered/Resolved]
  - Neutropenic sepsis [Recovered/Resolved]
  - Myelosuppression [Recovered/Resolved]
  - Erythema [Recovered/Resolved]
  - Oedema peripheral [Recovered/Resolved]
  - Myalgia [Recovered/Resolved]
  - Dyspepsia [Recovered/Resolved]
  - Urinary tract infection [Recovered/Resolved]
  - Fatigue [Recovered/Resolved]
  - Dysgeusia [Recovered/Resolved]
  - Decreased appetite [Recovered/Resolved]

NARRATIVE: CASE EVENT DATE: 20150813
